FAERS Safety Report 21179765 (Version 1)
Quarter: 2022Q3

REPORT INFORMATION
  Report Type: Spontaneous
  Country: JP (occurrence: JP)
  Receive Date: 20220805
  Receipt Date: 20220805
  Transmission Date: 20221027
  Serious: Yes (Other)
  Sender: FDA-Public Use
  Company Number: JP-NOVARTISPH-NVSJ2022JP095352

PATIENT
  Sex: Female

DRUGS (1)
  1. AFINITOR [Suspect]
     Active Substance: EVEROLIMUS
     Indication: Tuberous sclerosis complex
     Dosage: 10 UNK
     Route: 048
     Dates: start: 20190508

REACTIONS (2)
  - Enterocolitis [Recovered/Resolved]
  - Salpingitis [Recovered/Resolved]

NARRATIVE: CASE EVENT DATE: 20190501
